FAERS Safety Report 11707281 (Version 1)
Quarter: 2015Q4

REPORT INFORMATION
  Report Type: Spontaneous
  Country: BR (occurrence: BR)
  Receive Date: 20151106
  Receipt Date: 20151106
  Transmission Date: 20160304
  Serious: Yes (Other)
  Sender: FDA-Public Use
  Company Number: BR-ABBVIE-15P-020-1496412-00

PATIENT
  Age: 8 Year
  Sex: Female

DRUGS (1)
  1. VALPAKINE [Suspect]
     Active Substance: VALPROATE SODIUM
     Indication: PETIT MAL EPILEPSY
     Route: 048

REACTIONS (2)
  - Petit mal epilepsy [Unknown]
  - Medication error [Unknown]
